FAERS Safety Report 16423360 (Version 3)
Quarter: 2019Q3

REPORT INFORMATION
  Report Type: Report from Study
  Country: ES (occurrence: ES)
  Receive Date: 20190612
  Receipt Date: 20190903
  Transmission Date: 20191004
  Serious: No
  Sender: FDA-Public Use
  Company Number: ES-UCBSA-2019023145

PATIENT
  Age: 25 Year
  Sex: Female
  Weight: 72.5 kg

DRUGS (2)
  1. LACOSAMIDE VS. PLACEBO [Suspect]
     Active Substance: LACOSAMIDE
     Indication: EPILEPSY
     Dosage: 200 MILLIGRAM, 2X/DAY (BID)
     Route: 048
     Dates: start: 20190416, end: 20190514
  2. PERAMPANEL [Concomitant]
     Active Substance: PERAMPANEL
     Indication: EPILEPSY
     Dosage: 4 MILLIGRAM, ONCE DAILY (QD)
     Route: 048
     Dates: start: 20190130

REACTIONS (1)
  - Myoclonic epilepsy [Recovered/Resolved]

NARRATIVE: CASE EVENT DATE: 20190416
